FAERS Safety Report 11997651 (Version 1)
Quarter: 2016Q1

REPORT INFORMATION
  Report Type: Spontaneous
  Country: US (occurrence: US)
  Receive Date: 20160203
  Receipt Date: 20160203
  Transmission Date: 20160526
  Serious: No
  Sender: FDA-Public Use
  Company Number: US-ANACOR-2015ANA00193

PATIENT
  Age: 80 Year
  Sex: Female

DRUGS (1)
  1. KERYDIN [Suspect]
     Active Substance: TAVABOROLE
     Dosage: UNK
     Route: 061
     Dates: start: 201504

REACTIONS (2)
  - Application site erythema [Unknown]
  - Application site irritation [Unknown]

NARRATIVE: CASE EVENT DATE: 2015
